FAERS Safety Report 8925986 (Version 2)
Quarter: 2013Q2

REPORT INFORMATION
  Report Type: Spontaneous
  Country: IL (occurrence: IL)
  Receive Date: 20121126
  Receipt Date: 20130626
  Transmission Date: 20140414
  Serious: Yes (Death, Other)
  Sender: FDA-Public Use
  Company Number: IL-SPECTRUM PHARMACEUTICALS, INC.-12-F-IL-00173

PATIENT
  Sex: 0

DRUGS (5)
  1. FLUOROURACIL [Suspect]
     Indication: SQUAMOUS CELL CARCINOMA OF HEAD AND NECK
     Dosage: 750 MG/M2/DAY CONTINUOUS INFUSION ON DAYS 1-5; EVERY 3 WEEKS
     Route: 042
  2. DOCETAXEL [Suspect]
     Indication: SQUAMOUS CELL CARCINOMA OF HEAD AND NECK
     Dosage: 75 MG/M2 ON DAY 1; EVERY 3 WEEKS
     Route: 042
  3. CISPLATIN [Suspect]
     Indication: SQUAMOUS CELL CARCINOMA OF HEAD AND NECK
     Dosage: 75 MG/M2 ON DAY 1; EVERY 3 WEEKS
     Route: 042
  4. CIPROFLOXACIN [Concomitant]
     Indication: ANTIBIOTIC PROPHYLAXIS
     Dosage: STARING ON DAY 5 OF EACH CYCLE
     Route: 065
  5. DEXAMETHASONE [Concomitant]
     Indication: PREMEDICATION
     Dosage: STARTED 12 HOURS PRIOR TO DOCETAXEL
     Route: 065

REACTIONS (2)
  - Respiratory failure [Fatal]
  - Neutropenia [Unknown]
